FAERS Safety Report 17037143 (Version 1)
Quarter: 2019Q4

REPORT INFORMATION
  Report Type: Spontaneous
  Country: CA (occurrence: CA)
  Receive Date: 20191115
  Receipt Date: 20191115
  Transmission Date: 20200122
  Serious: Yes (Hospitalization, Other)
  Sender: FDA-Public Use
  Company Number: CA-ASTRAZENECA-2019SF62225

PATIENT
  Age: 64 Year
  Sex: Male

DRUGS (7)
  1. PANTOPRAZOLE SODIUM. [Suspect]
     Active Substance: PANTOPRAZOLE SODIUM
     Indication: GASTROOESOPHAGEAL REFLUX DISEASE
     Route: 065
  2. SYMBICORT [Suspect]
     Active Substance: BUDESONIDE\FORMOTEROL FUMARATE DIHYDRATE
     Indication: ASTHMA
     Dosage: UNK UNK, QID
     Route: 055
  3. PREDNISONE. [Suspect]
     Active Substance: PREDNISONE
     Indication: ASTHMA
     Route: 065
  4. SYMBICORT [Suspect]
     Active Substance: BUDESONIDE\FORMOTEROL FUMARATE DIHYDRATE
     Indication: ASTHMA
     Dosage: UNK UNK, TID
     Route: 055
  5. ALVESCO [Suspect]
     Active Substance: CICLESONIDE
     Indication: ASTHMA
     Dosage: UNK UNK, QD
     Route: 065
  6. SALBUTAMOL SULFATE [Suspect]
     Active Substance: ALBUTEROL SULFATE
     Indication: ASTHMA
     Dosage: 100 MILLIGRAM
     Route: 065
  7. TIOTROPIUM [Suspect]
     Active Substance: TIOTROPIUM
     Indication: ASTHMA
     Dosage: UNK UNK, QD
     Route: 065

REACTIONS (25)
  - Blood count abnormal [Recovered/Resolved]
  - Vascular shunt [Recovered/Resolved]
  - Bronchiolitis [Recovered/Resolved]
  - Eosinophil count increased [Recovered/Resolved]
  - Fatigue [Recovered/Resolved]
  - Lymphadenopathy [Recovered/Resolved]
  - Lung consolidation [Recovered/Resolved]
  - Sleep apnoea syndrome [Recovered/Resolved]
  - Chest discomfort [Recovered/Resolved]
  - Dyspnoea exertional [Recovered/Resolved]
  - Oxygen saturation decreased [Recovered/Resolved]
  - Renal cyst [Recovered/Resolved]
  - Chest X-ray abnormal [Recovered/Resolved]
  - Nasal congestion [Recovered/Resolved]
  - Snoring [Recovered/Resolved]
  - Wheezing [Recovered/Resolved]
  - Asthma [Recovered/Resolved]
  - Bronchiectasis [Recovered/Resolved]
  - Obstruction [Recovered/Resolved]
  - Productive cough [Recovered/Resolved]
  - Sputum discoloured [Recovered/Resolved]
  - Bronchial secretion retention [Recovered/Resolved]
  - Condition aggravated [Recovered/Resolved]
  - Hypoxia [Recovered/Resolved]
  - Therapeutic product effect incomplete [Recovered/Resolved]
